FAERS Safety Report 6074218-9 (Version None)
Quarter: 2009Q1

REPORT INFORMATION
  Report Type: 
  Country: None (occurrence: None)
  Receive Date: 20090211
  Receipt Date: 20090203
  Transmission Date: 20090719
  Serious: Yes (Life-Threatening)
  Sender: FDA-Public Use
  Company Number: FR-SANOFI-SYNTHELABO-A02200900298

PATIENT
  Age: 67 Year
  Sex: Male

DRUGS (10)
  1. PHYSIOTENS [Concomitant]
     Dosage: UNK
     Route: 048
  2. LOXEN [Concomitant]
     Dosage: UNK
     Route: 065
  3. GLUCOPHAGE [Concomitant]
     Dosage: UNK
     Route: 048
  4. NOVONORM [Concomitant]
     Dosage: UNK
     Route: 048
  5. ACTOS [Concomitant]
     Dosage: UNK
     Route: 065
  6. SULFATE DE MAGNESIUM [Concomitant]
     Route: 042
     Dates: start: 20081217, end: 20081217
  7. CHLORURE DE CALCIUM [Concomitant]
     Route: 042
     Dates: start: 20081217, end: 20081217
  8. ZOPHREN [Concomitant]
     Route: 042
     Dates: start: 20081217, end: 20081217
  9. SOLU-MEDROL [Concomitant]
     Route: 042
     Dates: start: 20081217, end: 20081217
  10. ELOXATIN [Suspect]
     Indication: COLON CANCER METASTATIC
     Route: 042
     Dates: start: 20081217, end: 20081217

REACTIONS (6)
  - CONVULSION [None]
  - DYSPNOEA [None]
  - HYPERHIDROSIS [None]
  - HYPOTENSION [None]
  - LOSS OF CONSCIOUSNESS [None]
  - URINARY INCONTINENCE [None]
